FAERS Safety Report 17835033 (Version 1)
Quarter: 2020Q2

REPORT INFORMATION
  Report Type: Spontaneous
  Country: US (occurrence: US)
  Receive Date: 20200528
  Receipt Date: 20200528
  Transmission Date: 20200714
  Serious: No
  Sender: FDA-Public Use
  Company Number: US-RARE DISEASE THERAPEUTICS, INC.-2084263

PATIENT
  Age: 11 Month
  Sex: Male

DRUGS (1)
  1. ANASCORP [Suspect]
     Active Substance: SCORPION (CENTRUROIDES) IMMUNE FAB2 ANTIVENIN (EQUINE)
     Indication: ARTHROPOD STING
     Dates: start: 20200516, end: 20200516

REACTIONS (1)
  - Urticaria [Unknown]

NARRATIVE: CASE EVENT DATE: 20200516
